FAERS Safety Report 6467545-4 (Version None)
Quarter: 2009Q4

REPORT INFORMATION
  Report Type: 
  Country: None (occurrence: None)
  Receive Date: 20091202
  Receipt Date: 20091105
  Transmission Date: 20100525
  Serious: No
  Sender: FDA-Public Use
  Company Number: US-BAYER-200916576BCC

PATIENT
  Sex: Female

DRUGS (2)
  1. MIDOL [Suspect]
     Indication: DYSMENORRHOEA
     Dosage: UNIT DOSE: 220 MG
     Route: 048
  2. UNKNOWN BLOOD PRESSURE MEDICATION [Concomitant]
     Route: 065

REACTIONS (1)
  - DYSMENORRHOEA [None]
